FAERS Safety Report 21990098 (Version 1)
Quarter: 2023Q1

REPORT INFORMATION
  Report Type: Spontaneous
  Country: IT (occurrence: IT)
  Receive Date: 20230214
  Receipt Date: 20230214
  Transmission Date: 20230418
  Serious: Yes (Hospitalization, Other)
  Sender: FDA-Public Use
  Company Number: IT-MYLANLABS-2023M1015146

PATIENT
  Age: 45 Year
  Sex: Female

DRUGS (1)
  1. ALPRAZOLAM [Suspect]
     Active Substance: ALPRAZOLAM
     Indication: Sleep disorder
     Dosage: UNK,SHE INJECTED INTRA-CAROTID ALPRAZOLAM SOLUTION
     Route: 065

REACTIONS (4)
  - Embolic stroke [Recovered/Resolved]
  - Intentional product misuse [Recovered/Resolved]
  - Swelling [Unknown]
  - Off label use [Unknown]
